FAERS Safety Report 9462214 (Version 3)
Quarter: 2014Q3

REPORT INFORMATION
  Report Type: Spontaneous
  Country: US (occurrence: US)
  Receive Date: 20130816
  Receipt Date: 20140805
  Transmission Date: 20150326
  Serious: Yes (Hospitalization, Disabling, Other)
  Sender: FDA-Public Use
  Company Number: US-009507513-2010SP021079

PATIENT
  Sex: Female

DRUGS (1)
  1. NUVARING [Suspect]
     Active Substance: ETHINYL ESTRADIOL\ETONOGESTREL
     Indication: CONTRACEPTION
     Dosage: UNK
     Route: 067
     Dates: start: 200810, end: 20090723

REACTIONS (7)
  - Abortion spontaneous [Recovered/Resolved]
  - Maternal exposure before pregnancy [Unknown]
  - Migraine [Unknown]
  - Chest pain [Unknown]
  - Ovarian cyst [Unknown]
  - Pulmonary embolism [Unknown]
  - Chest pain [Unknown]

NARRATIVE: CASE EVENT DATE: 200907
